FAERS Safety Report 14212532 (Version 1)
Quarter: 2017Q4

REPORT INFORMATION
  Report Type: Spontaneous
  Country: US (occurrence: None)
  Receive Date: 20171121
  Receipt Date: 20171121
  Transmission Date: 20180321
  Serious: Yes (Death)
  Sender: FDA-Public Use
  Company Number: None

PATIENT
  Age: 64 Year
  Sex: Female

DRUGS (10)
  1. MYCOPHENOLATE 500MG [Suspect]
     Active Substance: MYCOPHENOLIC ACID
     Indication: CONNECTIVE TISSUE DISORDER
     Route: 048
     Dates: start: 20170303, end: 20171107
  2. CALCIUM [Concomitant]
     Active Substance: CALCIUM
  3. FUROSEMIDE. [Concomitant]
     Active Substance: FUROSEMIDE
  4. AZELASTINE. [Concomitant]
     Active Substance: AZELASTINE HYDROCHLORIDE
  5. REMODULIN [Concomitant]
     Active Substance: TREPROSTINIL
  6. ADCIRCA [Suspect]
     Active Substance: TADALAFIL
     Indication: CONNECTIVE TISSUE DISORDER
     Route: 048
     Dates: start: 20151024, end: 20171107
  7. SPIRONOLACT [Concomitant]
     Active Substance: SPIRONOLACTONE
  8. SIMVASTATIN. [Concomitant]
     Active Substance: SIMVASTATIN
  9. FAMOTIDINE. [Concomitant]
     Active Substance: FAMOTIDINE
  10. MYCOPHENOLAT [Concomitant]
     Active Substance: MYCOPHENOLATE MOFETIL

REACTIONS (1)
  - Death [None]
